FAERS Safety Report 14699156 (Version 2)
Quarter: 2018Q2

REPORT INFORMATION
  Report Type: Spontaneous
  Country: US (occurrence: US)
  Receive Date: 20180330
  Receipt Date: 20180404
  Transmission Date: 20180711
  Serious: No
  Sender: FDA-Public Use
  Company Number: US-PFIZER INC-2018128862

PATIENT
  Age: 79 Year
  Sex: Female
  Weight: 73 kg

DRUGS (2)
  1. SUTENT [Suspect]
     Active Substance: SUNITINIB MALATE
     Indication: RENAL CANCER
     Dosage: 50 MG, CYCLIC (1 CAPSULE DAILY 1-28/DAYS 4/WEEKS ON/2WEEKS OFF)
     Route: 048
     Dates: start: 20171127
  2. SUTENT [Suspect]
     Active Substance: SUNITINIB MALATE
     Dosage: 5 MG, 2X/DAY
     Route: 048
     Dates: start: 20171128

REACTIONS (2)
  - Neoplasm progression [Unknown]
  - Nausea [Unknown]
